FAERS Safety Report 6215378-6 (Version None)
Quarter: 2009Q2

REPORT INFORMATION
  Report Type: 
  Country: None (occurrence: None)
  Receive Date: 20090604
  Receipt Date: 20090526
  Transmission Date: 20091009
  Serious: Yes (Other)
  Sender: FDA-Public Use
  Company Number: PHHY2009JP20737

PATIENT
  Sex: Male
  Weight: 52 kg

DRUGS (10)
  1. COMTAN CMT+TAB [Suspect]
     Indication: DRUG EFFECT DECREASED
     Dosage: 400 MG DAILY
     Route: 048
     Dates: start: 20090324, end: 20090330
  2. COMTAN CMT+TAB [Suspect]
     Indication: PARKINSON'S DISEASE
     Dosage: 300 MG DAILY
     Route: 048
     Dates: start: 20090331, end: 20090501
  3. COMTAN CMT+TAB [Suspect]
     Dosage: 200 MG DAILY
     Route: 048
     Dates: start: 20090502, end: 20090509
  4. CARBIDOPA AND LEVODOPA [Concomitant]
     Indication: PARKINSON'S DISEASE
     Dosage: 400 MG, UNK
     Route: 048
     Dates: start: 20090317
  5. SELEGILINE HYDROCHLORIDE [Concomitant]
     Indication: PARKINSON'S DISEASE
     Dosage: 5 MG, UNK
     Route: 048
     Dates: start: 20090317, end: 20090402
  6. PERMAX [Concomitant]
     Indication: PARKINSON'S DISEASE
     Dosage: 1000 MG, UNK
     Route: 048
     Dates: start: 20090317
  7. PERMAX [Concomitant]
     Dosage: 1000 MG, UNK
     Route: 048
     Dates: end: 20090422
  8. SYMMETREL [Concomitant]
     Indication: PARKINSON'S DISEASE
     Dosage: 150 MG, UNK
     Route: 048
  9. NORVASC [Concomitant]
     Indication: HYPERTENSION
     Dosage: 5 MG, UNK
     Route: 048
     Dates: start: 20090324
  10. LENDORMIN [Concomitant]
     Indication: HYPERTENSION
     Dosage: 0.25 MG, UNK
     Route: 048
     Dates: start: 20090423

REACTIONS (1)
  - LIBIDO INCREASED [None]
